FAERS Safety Report 7911314-2 (Version None)
Quarter: 2011Q4

REPORT INFORMATION
  Report Type: 
  Country: None (occurrence: None)
  Receive Date: 20111109
  Receipt Date: 20111026
  Transmission Date: 20120403
  Serious: Yes (Other)
  Sender: FDA-Public Use
  Company Number: TPA2011A07145

PATIENT
  Age: 9 Decade
  Sex: Female

DRUGS (6)
  1. ALDACTONE [Concomitant]
  2. ACTOS [Suspect]
     Indication: DIABETES MELLITUS
     Dates: end: 20111026
  3. LASIX [Concomitant]
  4. UNSPECIFIED THYROID THERAPY (THYROID THERAPY) [Concomitant]
  5. JANUVIA [Concomitant]
  6. DEXILANT (CALCIUM) [Concomitant]

REACTIONS (1)
  - HEART VALVE CALCIFICATION [None]
